FAERS Safety Report 5821702-6 (Version None)
Quarter: 2008Q3

REPORT INFORMATION
  Report Type: 
  Country: None (occurrence: None)
  Receive Date: 20080724
  Receipt Date: 20080709
  Transmission Date: 20090109
  Serious: Yes (Other)
  Sender: FDA-Public Use
  Company Number: JP-PFIZER INC-2008061175

PATIENT

DRUGS (6)
  1. MIGLITOL TABLET [Suspect]
     Indication: DIABETES MELLITUS
     Dosage: DAILY DOSE:150MG
     Route: 048
     Dates: start: 20080512, end: 20080609
  2. LONGES [Concomitant]
     Route: 048
  3. BUFFERIN [Concomitant]
     Route: 048
  4. AMARYL [Concomitant]
     Route: 048
  5. MELBIN [Concomitant]
     Route: 048
  6. CRESTOR [Concomitant]
     Route: 048

REACTIONS (1)
  - HEPATIC FUNCTION ABNORMAL [None]
